FAERS Safety Report 6161194-3 (Version None)
Quarter: 2009Q2

REPORT INFORMATION
  Report Type: 
  Country: None (occurrence: None)
  Receive Date: 20090421
  Receipt Date: 20090414
  Transmission Date: 20091009
  Serious: No
  Sender: FDA-Public Use
  Company Number: US-JNJFOC-20090404371

PATIENT
  Sex: Female
  Weight: 52.16 kg

DRUGS (6)
  1. DURAGESIC-100 [Suspect]
     Indication: BONE PAIN
     Route: 062
  2. HYDROCODONE BITARTRATE + ACETAMINOPHEN [Concomitant]
     Indication: PAIN
     Dosage: 10/500 MG
     Route: 048
  3. UNSPECIFIED MEDICATIONS [Concomitant]
     Indication: NAUSEA
  4. UNSPECIFIED MEDICATIONS [Concomitant]
     Indication: OEDEMA
  5. XANAX [Concomitant]
     Indication: ANXIETY
     Route: 048
  6. XANAX [Concomitant]
     Indication: SLEEP DISORDER THERAPY
     Dosage: AT BED TIME
     Route: 048

REACTIONS (1)
  - WRONG TECHNIQUE IN DRUG USAGE PROCESS [None]
